FAERS Safety Report 9056025 (Version 1)
Quarter: 2013Q1

REPORT INFORMATION
  Report Type: Report from Study
  Country: JP (occurrence: JP)
  Receive Date: 20130205
  Receipt Date: 20130205
  Transmission Date: 20140127
  Serious: Yes (Death, Hospitalization)
  Sender: FDA-Public Use
  Company Number: JP-BRISTOL-MYERS SQUIBB COMPANY-16730574

PATIENT
  Age: 65 Year
  Sex: Female
  Weight: 42.5 kg

DRUGS (4)
  1. ORENCIA FOR INJ 250 MG/VIAL [Suspect]
     Indication: RHEUMATOID ARTHRITIS
     Route: 041
     Dates: start: 20120612, end: 20120626
  2. WARFARIN POTASSIUM [Suspect]
     Indication: PULMONARY EMBOLISM
     Dates: start: 20120711, end: 20120819
  3. PREDNISOLONE [Suspect]
     Indication: RHEUMATOID ARTHRITIS
     Dosage: CONTNG FOR 20 YRS
     Route: 048
  4. METHOTREXATE [Concomitant]

REACTIONS (2)
  - Gastrointestinal haemorrhage [Fatal]
  - Herpes zoster [Recovered/Resolved]
